FAERS Safety Report 22074624 (Version 1)
Quarter: 2023Q1

REPORT INFORMATION
  Report Type: Spontaneous
  Country: US (occurrence: None)
  Receive Date: 20230308
  Receipt Date: 20230308
  Transmission Date: 20230417
  Serious: No
  Sender: FDA-Public Use
  Company Number: None

PATIENT

DRUGS (1)
  1. HEPARIN [Suspect]
     Active Substance: HEPARIN SODIUM
     Dosage: OTHER STRENGTH : 1000 UNITS/500ML;?

REACTIONS (4)
  - Wrong dosage formulation [None]
  - Product label confusion [None]
  - Physical product label issue [None]
  - Intercepted product storage error [None]
